FAERS Safety Report 6256240-2 (Version None)
Quarter: 2009Q3

REPORT INFORMATION
  Report Type: 
  Country: None (occurrence: None)
  Receive Date: 20090706
  Receipt Date: 20090330
  Transmission Date: 20100115
  Serious: No
  Sender: FDA-Public Use
  Company Number: A0775920A

PATIENT
  Age: 75 Year
  Sex: Female

DRUGS (2)
  1. ADVAIR HFA [Suspect]
     Indication: SINUS DISORDER
     Route: 055
     Dates: start: 20090327, end: 20090329
  2. VICODIN [Concomitant]

REACTIONS (4)
  - DYSPNOEA [None]
  - HEADACHE [None]
  - NASAL CONGESTION [None]
  - RHINORRHOEA [None]
